FAERS Safety Report 16877544 (Version 5)
Quarter: 2019Q4

REPORT INFORMATION
  Report Type: Spontaneous
  Country: US (occurrence: US)
  Receive Date: 20191002
  Receipt Date: 20191204
  Transmission Date: 20200122
  Serious: Yes (Other)
  Sender: FDA-Public Use
  Company Number: US-PFIZER INC-2019421724

PATIENT
  Age: 77 Year
  Sex: Female
  Weight: 68.49 kg

DRUGS (4)
  1. LYRICA [Suspect]
     Active Substance: PREGABALIN
     Dosage: UNK
  2. LYRICA [Suspect]
     Active Substance: PREGABALIN
     Dosage: UNK, 2X/DAY
     Dates: start: 1983
  3. LYRICA [Suspect]
     Active Substance: PREGABALIN
     Indication: FIBROMYALGIA
     Dosage: 50 MG, UNK
  4. LYRICA [Suspect]
     Active Substance: PREGABALIN
     Indication: PAIN
     Dosage: 1 DF, 2X/DAY
     Route: 048

REACTIONS (11)
  - Somnolence [Recovered/Resolved]
  - Tremor [Unknown]
  - Feeling of despair [Recovered/Resolved]
  - Musculoskeletal disorder [Unknown]
  - Drug dependence [Recovered/Resolved]
  - Malaise [Recovered/Resolved]
  - Visual acuity reduced [Recovered/Resolved]
  - Memory impairment [Recovered/Resolved]
  - Sensory loss [Recovered/Resolved]
  - Dysgraphia [Recovered/Resolved]
  - Expired product administered [Recovered/Resolved]

NARRATIVE: CASE EVENT DATE: 201810
